FAERS Safety Report 5115284-4 (Version None)
Quarter: 2006Q3

REPORT INFORMATION
  Report Type: 
  Country: None (occurrence: None)
  Receive Date: 20060926
  Receipt Date: 20060919
  Transmission Date: 20061208
  Serious: Yes (Other)
  Sender: FDA-Public Use
  Company Number: ES-GLAXOSMITHKLINE-B0439269A

PATIENT
  Age: 50 Year
  Sex: Female

DRUGS (6)
  1. LAMICTAL [Suspect]
     Indication: BIPOLAR DISORDER
     Dates: start: 20060501, end: 20060907
  2. PLENUR [Concomitant]
  3. CARBAMAZEPINE [Concomitant]
  4. ECT [Concomitant]
  5. CYMBALTA [Concomitant]
     Dosage: 120MG PER DAY
  6. ZYPREXA [Concomitant]

REACTIONS (4)
  - DEMENTIA [None]
  - HALLUCINATION [None]
  - HYPOMANIA [None]
  - PSYCHOTIC DISORDER [None]
